FAERS Safety Report 8246967-5 (Version None)
Quarter: 2012Q1

REPORT INFORMATION
  Report Type: 
  Country: None (occurrence: None)
  Receive Date: 20120330
  Receipt Date: 20120315
  Transmission Date: 20120608
  Serious: Yes (Other)
  Sender: FDA-Public Use
  Company Number: JP-ROCHE-1023833

PATIENT
  Sex: Female

DRUGS (4)
  1. LEVOFLOXACIN [Concomitant]
     Dates: start: 20101101, end: 20101101
  2. TRIAMCINOLONE [Concomitant]
     Indication: AGE-RELATED MACULAR DEGENERATION
  3. RANIBIZUMAB [Suspect]
     Indication: AGE-RELATED MACULAR DEGENERATION
     Route: 050
     Dates: start: 20090623
  4. RANIBIZUMAB [Suspect]
     Route: 050
     Dates: start: 20101109

REACTIONS (2)
  - VITREOUS DETACHMENT [None]
  - VITREOUS HAEMORRHAGE [None]
